FAERS Safety Report 15975195 (Version 1)
Quarter: 2019Q1

REPORT INFORMATION
  Report Type: Spontaneous
  Country: US (occurrence: US)
  Receive Date: 20190218
  Receipt Date: 20190218
  Transmission Date: 20190418
  Serious: Yes (Other)
  Sender: FDA-Public Use
  Company Number: US-SA-2019SA041081

PATIENT
  Sex: Female

DRUGS (1)
  1. FABRAZYME [Suspect]
     Active Substance: AGALSIDASE BETA
     Route: 041

REACTIONS (7)
  - Hypersomnia [Unknown]
  - Headache [Unknown]
  - Lethargy [Unknown]
  - Thinking abnormal [Unknown]
  - Feeling abnormal [Unknown]
  - Transient ischaemic attack [Unknown]
  - Aneurysm [Unknown]

NARRATIVE: CASE EVENT DATE: 20181208
